FAERS Safety Report 25037244 (Version 1)
Quarter: 2025Q1

REPORT INFORMATION
  Report Type: Spontaneous
  Country: FR (occurrence: FR)
  Receive Date: 20250304
  Receipt Date: 20250304
  Transmission Date: 20250408
  Serious: Yes (Hospitalization)
  Sender: PFIZER
  Company Number: FR-PFIZER INC-PV202500026154

PATIENT
  Age: 90 Year
  Sex: Female

DRUGS (2)
  1. IBRANCE [Suspect]
     Active Substance: PALBOCICLIB
     Dosage: 100 MG, DAILY
     Dates: start: 202412, end: 202412
  2. LETROZOLE [Concomitant]
     Active Substance: LETROZOLE
     Dates: start: 202412

REACTIONS (1)
  - Vertigo [Recovering/Resolving]

NARRATIVE: CASE EVENT DATE: 20241201
